FAERS Safety Report 5360301-X (Version None)
Quarter: 2007Q2

REPORT INFORMATION
  Report Type: 
  Country: None (occurrence: None)
  Receive Date: 20070618
  Receipt Date: 20070608
  Transmission Date: 20071010
  Serious: Yes (Other)
  Sender: FDA-Public Use
  Company Number: AU-JNJFOC-20070602774

PATIENT
  Age: 46 Year
  Sex: Male

DRUGS (2)
  1. RISPERDAL CONSTA [Suspect]
     Indication: DRUG USE FOR UNKNOWN INDICATION
     Route: 030
  2. OLANZAPINE [Concomitant]

REACTIONS (3)
  - AGRANULOCYTOSIS [None]
  - PYREXIA [None]
  - RASH PRURITIC [None]
